FAERS Safety Report 8572521-1 (Version None)
Quarter: 2012Q3

REPORT INFORMATION
  Report Type: 
  Country: None (occurrence: None)
  Receive Date: 20120806
  Receipt Date: 20120724
  Transmission Date: 20120928
  Serious: Yes (Life-Threatening)
  Sender: FDA-Public Use
  Company Number: FR-ROCHE-1092352

PATIENT
  Age: 56 Year
  Sex: Male

DRUGS (16)
  1. ZOLPIDEM [Suspect]
     Indication: PRODUCT USED FOR UNKNOWN INDICATION
     Route: 048
  2. OMEPRAZOLE [Concomitant]
  3. EUPRESSYL [Concomitant]
  4. CLONAZEPAM [Suspect]
     Indication: MYOCLONUS
     Dosage: 1 AMPULE
     Dates: start: 20120123, end: 20120123
  5. BIPERIDYS [Concomitant]
  6. FOLIC ACID [Concomitant]
  7. KAYEXALATE [Concomitant]
     Dosage: 1 CUILLER MEASURE EVERY 2 DAYS
  8. TRAMADOL HYDROCHLORIDE [Suspect]
     Indication: PRODUCT USED FOR UNKNOWN INDICATION
     Dates: end: 20120123
  9. NEBIVOLOL [Concomitant]
  10. ARANESP [Concomitant]
  11. ACETAMINOPHEN [Concomitant]
  12. DUPHALAC [Concomitant]
     Dosage: 3 PACKETS
  13. LASIX [Concomitant]
  14. ATARAX [Concomitant]
  15. AMLODIPINE BESYLATE [Concomitant]
  16. ORAMORPH SR [Suspect]
     Indication: PRODUCT USED FOR UNKNOWN INDICATION
     Route: 048
     Dates: end: 20120123

REACTIONS (3)
  - RENAL FAILURE ACUTE [None]
  - ACUTE RESPIRATORY FAILURE [None]
  - OVERDOSE [None]
